FAERS Safety Report 11088337 (Version 1)
Quarter: 2015Q2

REPORT INFORMATION
  Report Type: Spontaneous
  Country: US (occurrence: US)
  Receive Date: 20150504
  Receipt Date: 20150504
  Transmission Date: 20150821
  Serious: No
  Sender: FDA-Public Use
  Company Number: US-TEVA-559379USA

PATIENT
  Sex: Female

DRUGS (1)
  1. COPAXONE [Suspect]
     Active Substance: GLATIRAMER ACETATE
     Indication: MULTIPLE SCLEROSIS
     Dates: start: 20150331

REACTIONS (6)
  - Injection site warmth [Unknown]
  - Product use issue [Unknown]
  - Injection site erythema [Unknown]
  - Injection site reaction [Unknown]
  - Off label use [Unknown]
  - Urticaria [Unknown]
